FAERS Safety Report 4597222-6 (Version None)
Quarter: 2005Q1

REPORT INFORMATION
  Report Type: 
  Country: None (occurrence: None)
  Receive Date: 20050301
  Receipt Date: 20050214
  Transmission Date: 20050727
  Serious: Yes (Hospitalization)
  Sender: FDA-Public Use
  Company Number: 2005029770

PATIENT
  Age: 91 Year
  Sex: Male
  Weight: 40 kg

DRUGS (4)
  1. GLYCERYL TRINITRATE PATCH (GLYCERYL TRINITRATE) [Suspect]
     Indication: ILL-DEFINED DISORDER
     Dosage: 5 MG (QD); TRANSDERMAL
     Route: 062
     Dates: end: 20041220
  2. ATENOLOL [Suspect]
     Indication: ILL-DEFINED DISORDER
     Dosage: 50 MG (QD); ORAL
     Route: 048
     Dates: end: 20041220
  3. CHLORAMBUCIL [Concomitant]
  4. PREDNISOLONE SODIUM PHOSPHATE [Concomitant]

REACTIONS (4)
  - ATRIOVENTRICULAR BLOCK FIRST DEGREE [None]
  - FALL [None]
  - GENERAL PHYSICAL HEALTH DETERIORATION [None]
  - HYPOTENSION [None]
